FAERS Safety Report 15003233 (Version 1)
Quarter: 2018Q2

REPORT INFORMATION
  Report Type: Spontaneous
  Country: AU (occurrence: AU)
  Receive Date: 20180613
  Receipt Date: 20180613
  Transmission Date: 20180711
  Serious: Yes (Other)
  Sender: FDA-Public Use
  Company Number: AU-ROCHE-2138100

PATIENT
  Age: 65 Year
  Sex: Male

DRUGS (1)
  1. XOLAIR [Suspect]
     Active Substance: OMALIZUMAB
     Indication: ASTHMA
     Dosage: 375 MG, BIW
     Route: 065
     Dates: start: 2016

REACTIONS (4)
  - Eosinophilic granulomatosis with polyangiitis [Unknown]
  - Obsessive-compulsive symptom [Unknown]
  - Asthma [Unknown]
  - Drug ineffective [Unknown]
